FAERS Safety Report 5133416-9 (Version None)
Quarter: 2006Q4

REPORT INFORMATION
  Report Type: 
  Country: None (occurrence: None)
  Receive Date: 20061024
  Receipt Date: 20060911
  Transmission Date: 20070319
  Serious: Yes (Hospitalization)
  Sender: FDA-Public Use
  Company Number: PHNU2006DE03092

PATIENT
  Age: 57 Year
  Sex: Male
  Weight: 110 kg

DRUGS (2)
  1. LEPONEX [Suspect]
     Dosage: 600 MG/DAY
     Route: 048
     Dates: start: 20000101, end: 20060726
  2. LEPONEX [Suspect]
     Dosage: 5000 MG/DAY
     Route: 048
     Dates: start: 20060726

REACTIONS (3)
  - CARDIAC DISORDER [None]
  - DRUG LEVEL INCREASED [None]
  - TACHYARRHYTHMIA [None]
